FAERS Safety Report 9528136 (Version 1)
Quarter: 2013Q3

REPORT INFORMATION
  Report Type: Spontaneous
  Country: US (occurrence: US)
  Receive Date: 20130917
  Receipt Date: 20130917
  Transmission Date: 20140515
  Serious: Yes (Other)
  Sender: FDA-Public Use
  Company Number: US-JNJFOC-20130905276

PATIENT
  Sex: Male
  Weight: 63.5 kg

DRUGS (10)
  1. XARELTO [Suspect]
     Indication: CEREBROVASCULAR ACCIDENT PROPHYLAXIS
     Route: 048
     Dates: start: 201308
  2. XARELTO [Suspect]
     Indication: CEREBROVASCULAR ACCIDENT PROPHYLAXIS
     Route: 048
  3. XARELTO [Suspect]
     Indication: CEREBROVASCULAR ACCIDENT PROPHYLAXIS
     Route: 048
     Dates: start: 2012, end: 20130814
  4. XARELTO [Suspect]
     Indication: ATRIAL FIBRILLATION
     Route: 048
     Dates: start: 201308
  5. XARELTO [Suspect]
     Indication: ATRIAL FIBRILLATION
     Route: 048
  6. XARELTO [Suspect]
     Indication: ATRIAL FIBRILLATION
     Route: 048
     Dates: start: 2012, end: 20130814
  7. DILTIAZEM [Concomitant]
     Indication: ATRIAL FIBRILLATION
     Route: 048
     Dates: start: 2002
  8. LORAZEPAM [Concomitant]
     Indication: ANXIETY
     Route: 048
  9. ARMOUR THYROID [Concomitant]
     Route: 048
     Dates: start: 2013
  10. NIACIN [Concomitant]
     Indication: BLOOD CHOLESTEROL INCREASED
     Route: 048
     Dates: start: 2013

REACTIONS (7)
  - Blood urine present [Recovered/Resolved]
  - Penile vein thrombosis [Unknown]
  - Nocturia [Not Recovered/Not Resolved]
  - Pain [Unknown]
  - Dysuria [Recovered/Resolved]
  - Blood sodium decreased [Unknown]
  - Local swelling [Unknown]
